FAERS Safety Report 8326156-6 (Version None)
Quarter: 2012Q2

REPORT INFORMATION
  Report Type: 
  Country: None (occurrence: None)
  Receive Date: 20120501
  Receipt Date: 20120420
  Transmission Date: 20120825
  Serious: Yes (Hospitalization, Other)
  Sender: FDA-Public Use
  Company Number: GB-ROCHE-1061578

PATIENT
  Sex: Male
  Weight: 84 kg

DRUGS (1)
  1. MABTHERA [Suspect]
     Indication: RHEUMATOID ARTHRITIS
     Dosage: LAST DOSE PRIOR TO SAE: 25/JUL/2011
     Dates: start: 20081021

REACTIONS (2)
  - HAEMOGLOBIN DECREASED [None]
  - HAEMATEMESIS [None]
